FAERS Safety Report 11714308 (Version 2)
Quarter: 2015Q4

REPORT INFORMATION
  Report Type: Report from Study
  Country: GB (occurrence: GB)
  Receive Date: 20151109
  Receipt Date: 20151204
  Transmission Date: 20160304
  Serious: Yes (Hospitalization)
  Sender: FDA-Public Use
  Company Number: PHFR2013GB007344

PATIENT
  Age: 57 Year
  Sex: Female
  Weight: 92.4 kg

DRUGS (1)
  1. AFINITOR [Suspect]
     Active Substance: EVEROLIMUS
     Indication: PANCREATIC NEUROENDOCRINE TUMOUR
     Dosage: 10 MG, UNK
     Route: 048
     Dates: start: 20130823, end: 20140313

REACTIONS (16)
  - Stoma site haemorrhage [Recovered/Resolved]
  - Lower respiratory tract infection [Recovered/Resolved]
  - Blood phosphorus decreased [Recovered/Resolved with Sequelae]
  - Gastric haemorrhage [Recovered/Resolved]
  - Decreased appetite [Recovered/Resolved]
  - Oral candidiasis [Recovered/Resolved]
  - Lower respiratory tract infection [Recovered/Resolved]
  - Thrombocytopenia [Not Recovered/Not Resolved]
  - Vomiting [Not Recovered/Not Resolved]
  - Fatigue [Not Recovered/Not Resolved]
  - Pruritus [Recovered/Resolved]
  - Rash [Recovered/Resolved]
  - Productive cough [Recovered/Resolved]
  - Nausea [Not Recovered/Not Resolved]
  - Gastric polyps [Recovered/Resolved]
  - Infection [Recovering/Resolving]

NARRATIVE: CASE EVENT DATE: 201308
